FAERS Safety Report 15783884 (Version 1)
Quarter: 2019Q1

REPORT INFORMATION
  Report Type: Report from Study
  Country: None (occurrence: US)
  Receive Date: 20190102
  Receipt Date: 20190102
  Transmission Date: 20190417
  Serious: Yes (Other)
  Sender: FDA-Public Use
  Company Number: US-ABBVIE-18K-163-2504807-00

PATIENT
  Age: 59 Year
  Sex: Female

DRUGS (1)
  1. HUMIRA [Suspect]
     Active Substance: ADALIMUMAB
     Indication: RHEUMATOID ARTHRITIS
     Route: 058
     Dates: start: 20180925

REACTIONS (11)
  - Gait disturbance [Not Recovered/Not Resolved]
  - Arthralgia [Unknown]
  - Joint swelling [Not Recovered/Not Resolved]
  - Pain [Not Recovered/Not Resolved]
  - Loss of personal independence in daily activities [Unknown]
  - Arthralgia [Recovering/Resolving]
  - Discomfort [Not Recovered/Not Resolved]
  - Impaired self-care [Unknown]
  - Swelling [Unknown]
  - Joint stiffness [Not Recovered/Not Resolved]
  - Spinal column stenosis [Unknown]

NARRATIVE: CASE EVENT DATE: 2018
